FAERS Safety Report 18188458 (Version 1)
Quarter: 2020Q3

REPORT INFORMATION
  Report Type: Spontaneous
  Country: GT (occurrence: GT)
  Receive Date: 20200824
  Receipt Date: 20200824
  Transmission Date: 20201103
  Serious: Yes (Death, Other)
  Sender: FDA-Public Use
  Company Number: NVSC2020GT232774

PATIENT
  Age: 50 Year
  Sex: Female

DRUGS (1)
  1. GLIVEC [Suspect]
     Active Substance: IMATINIB MESYLATE
     Indication: CHRONIC MYELOID LEUKAEMIA
     Dosage: 400 MG (1 X 400 MG TABLET)
     Route: 065

REACTIONS (3)
  - Renal cancer [Unknown]
  - Second primary malignancy [Unknown]
  - Death [Fatal]

NARRATIVE: CASE EVENT DATE: 20200131
